FAERS Safety Report 7808212-1 (Version None)
Quarter: 2011Q4

REPORT INFORMATION
  Report Type: 
  Country: None (occurrence: None)
  Receive Date: 20111011
  Receipt Date: 20110926
  Transmission Date: 20120403
  Serious: Yes (Other)
  Sender: FDA-Public Use
  Company Number: US-ROCHE-1000487

PATIENT
  Sex: Female

DRUGS (2)
  1. ACCUTANE [Suspect]
     Indication: PRODUCT USED FOR UNKNOWN INDICATION
     Route: 065
     Dates: start: 20050101
  2. ACCUTANE [Suspect]
     Dates: start: 20080501, end: 20091001

REACTIONS (1)
  - GASTROINTESTINAL HYPOMOTILITY [None]
